FAERS Safety Report 21789241 (Version 1)
Quarter: 2022Q4

REPORT INFORMATION
  Report Type: Spontaneous
  Country: CN (occurrence: CN)
  Receive Date: 20221228
  Receipt Date: 20221228
  Transmission Date: 20230113
  Serious: Yes (Other)
  Sender: FDA-Public Use
  Company Number: CN-PADAGIS-2022PAD01251

PATIENT

DRUGS (3)
  1. NITROGLYCERIN [Suspect]
     Active Substance: NITROGLYCERIN
     Indication: Symptomatic treatment
     Dosage: UNDER THE TONGUE
     Route: 060
  2. GINKGO [Suspect]
     Active Substance: GINKGO
     Indication: Symptomatic treatment
     Dosage: UNK
     Route: 042
  3. INSULIN NOS [Concomitant]
     Active Substance: INSULIN NOS
     Indication: Diabetes mellitus
     Dosage: UNK
     Route: 058

REACTIONS (1)
  - Drug ineffective [Unknown]
